FAERS Safety Report 12293697 (Version 1)
Quarter: 2016Q2

REPORT INFORMATION
  Report Type: Report from Study
  Country: JP (occurrence: JP)
  Receive Date: 20160421
  Receipt Date: 20160421
  Transmission Date: 20160815
  Serious: Yes (Other)
  Sender: FDA-Public Use
  Company Number: JP-GILEAD-2016-0209276

PATIENT
  Age: 14 Year
  Sex: Male
  Weight: 60 kg

DRUGS (6)
  1. AMBRISENTAN [Suspect]
     Active Substance: AMBRISENTAN
     Indication: POSTOPERATIVE CARE
     Dosage: 5 MG, QD
     Route: 048
     Dates: start: 20140828
  2. AMBRISENTAN [Suspect]
     Active Substance: AMBRISENTAN
     Indication: DEXTROCARDIA
  3. AMBRISENTAN [Suspect]
     Active Substance: AMBRISENTAN
     Indication: UNIVENTRICULAR HEART
     Dosage: 2.5 MG, QD
     Route: 048
     Dates: start: 20140804, end: 20140827
  4. AMBRISENTAN [Suspect]
     Active Substance: AMBRISENTAN
     Indication: HETEROTAXIA
  5. WARFARIN (JAPANESE TRADENAME) [Concomitant]
     Dosage: UNK
  6. RENIVACE [Concomitant]
     Active Substance: ENALAPRIL
     Dosage: UNK

REACTIONS (3)
  - Pneumonia [Recovering/Resolving]
  - Bronchitis [Recovered/Resolved]
  - Off label use [Unknown]

NARRATIVE: CASE EVENT DATE: 20150118
